FAERS Safety Report 5022044-1 (Version None)
Quarter: 2006Q2

REPORT INFORMATION
  Report Type: 
  Country: None (occurrence: None)
  Receive Date: 20060605
  Receipt Date: 20060522
  Transmission Date: 20061013
  Serious: Yes (Other)
  Sender: FDA-Public Use
  Company Number: 2006SP002153

PATIENT
  Age: 42 Year
  Sex: Female

DRUGS (7)
  1. LUNESTA [Suspect]
     Indication: DEPRESSION
     Dosage: SEE IMAGE
     Route: 048
     Dates: start: 20060501, end: 20060501
  2. LUNESTA [Suspect]
     Indication: INSOMNIA
     Dosage: SEE IMAGE
     Route: 048
     Dates: start: 20060501, end: 20060501
  3. LUNESTA [Suspect]
     Indication: DEPRESSION
     Dosage: SEE IMAGE
     Route: 048
     Dates: start: 20060501
  4. LUNESTA [Suspect]
     Indication: INSOMNIA
     Dosage: SEE IMAGE
     Route: 048
     Dates: start: 20060501
  5. PROZAC [Suspect]
     Dosage: SEE IMAGE
     Route: 048
     Dates: start: 20060501, end: 20060501
  6. PROZAC [Suspect]
     Dosage: SEE IMAGE
     Route: 048
     Dates: start: 20060101
  7. EFFEXOR [Concomitant]

REACTIONS (3)
  - DYSARTHRIA [None]
  - OVERDOSE [None]
  - SUICIDE ATTEMPT [None]
